FAERS Safety Report 11987778 (Version 1)
Quarter: 2016Q1

REPORT INFORMATION
  Report Type: Spontaneous
  Country: US (occurrence: US)
  Receive Date: 20160202
  Receipt Date: 20160202
  Transmission Date: 20160526
  Serious: Yes (Hospitalization)
  Sender: FDA-Public Use
  Company Number: US-JNJFOC-20151218465

PATIENT
  Sex: Male

DRUGS (1)
  1. IMBRUVICA [Suspect]
     Active Substance: IBRUTINIB
     Indication: B-CELL PROLYMPHOCYTIC LEUKAEMIA
     Route: 065
     Dates: start: 2015

REACTIONS (3)
  - Atrial fibrillation [Unknown]
  - Bacterial sepsis [Unknown]
  - Off label use [Unknown]

NARRATIVE: CASE EVENT DATE: 2015
